FAERS Safety Report 9170322 (Version 1)
Quarter: 2013Q1

REPORT INFORMATION
  Report Type: Spontaneous
  Country: IT (occurrence: IT)
  Receive Date: 20130319
  Receipt Date: 20130319
  Transmission Date: 20140127
  Serious: Yes (Other)
  Sender: FDA-Public Use
  Company Number: IT-ACCORD-016905

PATIENT
  Age: 59 Year
  Sex: Female

DRUGS (1)
  1. QUETIAPINE FUMARATE [Suspect]
     Indication: INSOMNIA
     Dosage: DRUG STARTED WITH 25 MG AT NIGHT AND INCREASED TO 50 MG

REACTIONS (3)
  - Somnambulism [Recovered/Resolved]
  - Akathisia [Unknown]
  - Accident at home [Unknown]
